FAERS Safety Report 9022382 (Version 2)
Quarter: 2013Q1

REPORT INFORMATION
  Report Type: Spontaneous
  Country: LB (occurrence: LB)
  Receive Date: 20130118
  Receipt Date: 20130211
  Transmission Date: 20140127
  Serious: Yes (Hospitalization)
  Sender: FDA-Public Use
  Company Number: LB-MILLENNIUM PHARMACEUTICALS, INC.-2013-00177

PATIENT
  Sex: 0

DRUGS (4)
  1. VELCADE [Suspect]
     Indication: PLASMA CELL MYELOMA
     Dosage: 2 MG, CYCLIC
     Route: 042
     Dates: start: 20121022
  2. DEXAMETHASONE [Concomitant]
     Indication: PLASMA CELL MYELOMA
     Dosage: 40 MG, CYCLIC
     Dates: start: 20121022
  3. LASIX                              /00032601/ [Concomitant]
     Indication: CARDIAC FAILURE
  4. ASPIRIN [Concomitant]
     Indication: CARDIAC FAILURE

REACTIONS (1)
  - Orchitis [Recovered/Resolved]
